FAERS Safety Report 7232744-0 (Version None)
Quarter: 2011Q1

REPORT INFORMATION
  Report Type: 
  Country: None (occurrence: None)
  Receive Date: 20110107
  Receipt Date: 20101223
  Transmission Date: 20110831
  Serious: Yes (Hospitalization)
  Sender: FDA-Public Use
  Company Number: 2010004607

PATIENT
  Age: 59 Year
  Sex: Female

DRUGS (9)
  1. ERLOTINIB (ERLOTINIB) (TABLET) (ERLOTINIB) [Suspect]
     Indication: NON-SMALL CELL LUNG CANCER
     Dosage: 100 MG, QD, ORAL
     Route: 048
     Dates: start: 20100630, end: 20101007
  2. FRAGMIN [Concomitant]
  3. NEURONTIN [Concomitant]
  4. NORVASC [Concomitant]
  5. DILAUDID [Concomitant]
  6. PERTUZUMAB [Suspect]
     Indication: NON-SMALL CELL LUNG CANCER
     Dosage: 430 UNKNOWN, 1 IN 21 D, INTRAVENOUS
     Route: 042
     Dates: start: 20100630
  7. AMITRIPTYLINE HYDROCHLORIDE [Concomitant]
  8. POTASSIUM CHLORIDE [Concomitant]
  9. CIPROFLOXACIN [Concomitant]

REACTIONS (5)
  - PNEUMATOSIS INTESTINALIS [None]
  - PNEUMATOSIS [None]
  - PAIN IN EXTREMITY [None]
  - RASH [None]
  - BLOOD POTASSIUM DECREASED [None]
